FAERS Safety Report 6749325-5 (Version None)
Quarter: 2010Q2

REPORT INFORMATION
  Report Type: 
  Country: None (occurrence: None)
  Receive Date: 20100601
  Receipt Date: 20100518
  Transmission Date: 20101027
  Serious: Yes (Hospitalization)
  Sender: FDA-Public Use
  Company Number: JP-ROCHE-692250

PATIENT
  Sex: Male
  Weight: 25 kg

DRUGS (6)
  1. TAMIFLU [Suspect]
     Indication: INFLUENZA
     Route: 048
     Dates: start: 20070101, end: 20070101
  2. TAMIFLU [Suspect]
     Dosage: NOTE: DOSAGE IS UNCERTAIN.
     Route: 048
     Dates: start: 20080101, end: 20080101
  3. TAMIFLU [Suspect]
     Route: 048
     Dates: start: 20090616, end: 20090616
  4. BISOLVON [Concomitant]
     Dosage: DRUG: BROMHEXINE HYDROCHLORIDE, DOSE FORM: MINUTE GRAIN
     Route: 048
     Dates: start: 20090616, end: 20090620
  5. MUCODYNE [Concomitant]
     Dosage: DOSE FORM: MINUTE GRAIN
     Route: 048
     Dates: start: 20090616, end: 20090620
  6. MEPTIN [Concomitant]
     Dosage: DRUG: PROCATEROL HYDROCHLORIDE, DOSE FORM: GRANULATED POWDER.
     Route: 048
     Dates: start: 20090616, end: 20090620

REACTIONS (1)
  - ABNORMAL BEHAVIOUR [None]
